FAERS Safety Report 17917108 (Version 1)
Quarter: 2020Q2

REPORT INFORMATION
  Report Type: Spontaneous
  Country: US (occurrence: US)
  Receive Date: 20200619
  Receipt Date: 20200619
  Transmission Date: 20200714
  Serious: Yes (Other)
  Sender: FDA-Public Use
  Company Number: None

PATIENT
  Age: 47 Year
  Sex: Female
  Weight: 78.75 kg

DRUGS (8)
  1. LOSARTIN POTASSIUM 100 MG UNKNOWN [Concomitant]
     Active Substance: LOSARTAN POTASSIUM
  2. VITAMIN D [Concomitant]
     Active Substance: VITAMIN D NOS
  3. METFORMIN [Concomitant]
     Active Substance: METFORMIN HYDROCHLORIDE
  4. GABAPENTIN. [Concomitant]
     Active Substance: GABAPENTIN
  5. BUPROPION ER/SR [Suspect]
     Active Substance: BUPROPION
     Indication: DEPRESSION
     Dosage: ?          QUANTITY:1 TABLET(S);?
     Route: 048
     Dates: start: 20200430, end: 20200503
  6. CARBAMAEPINE [Concomitant]
  7. TURMERIC [Concomitant]
     Active Substance: HERBALS\TURMERIC
  8. VITAMIN B12 [Concomitant]
     Active Substance: CYANOCOBALAMIN

REACTIONS (2)
  - Hypoaesthesia [None]
  - Trigeminal neuralgia [None]

NARRATIVE: CASE EVENT DATE: 20200503
